FAERS Safety Report 16851739 (Version 2)
Quarter: 2019Q4

REPORT INFORMATION
  Report Type: Report from Study
  Country: US (occurrence: US)
  Receive Date: 20190925
  Receipt Date: 20191009
  Transmission Date: 20200122
  Serious: Yes (Hospitalization)
  Sender: FDA-Public Use
  Company Number: US-ACTELION-A-NJ2019-193011

PATIENT
  Age: 76 Year
  Sex: Male

DRUGS (16)
  1. PROSCAR [Concomitant]
     Active Substance: FINASTERIDE
  2. MELATONIN [Concomitant]
     Active Substance: MELATONIN
  3. OPSUMIT [Suspect]
     Active Substance: MACITENTAN
     Indication: PULMONARY ARTERIAL HYPERTENSION
     Dosage: 10 MG, QD
     Route: 048
     Dates: start: 20190619, end: 20190703
  4. FLONASE [Concomitant]
     Active Substance: FLUTICASONE PROPIONATE
  5. PANTOPRAZOLE [Concomitant]
     Active Substance: PANTOPRAZOLE
  6. ATORVASTATIN [Concomitant]
     Active Substance: ATORVASTATIN
     Dosage: UNK
     Dates: start: 20190703
  7. COREG [Concomitant]
     Active Substance: CARVEDILOL
     Dosage: UNK
     Dates: start: 20190703
  8. LASIX [Concomitant]
     Active Substance: FUROSEMIDE
     Dosage: 40 MG, QD
  9. HUMULIN NOS [Concomitant]
     Active Substance: INSULIN HUMAN
  10. ALLOPURINOL. [Concomitant]
     Active Substance: ALLOPURINOL
  11. LANTUS [Concomitant]
     Active Substance: INSULIN GLARGINE
  12. PLAVIX [Concomitant]
     Active Substance: CLOPIDOGREL BISULFATE
  13. LIPITOR [Concomitant]
     Active Substance: ATORVASTATIN CALCIUM
  14. PROTONIL [Concomitant]
  15. FLOMAX [Concomitant]
     Active Substance: TAMSULOSIN HYDROCHLORIDE
  16. ACETYLSALICYLIC ACID [Concomitant]
     Active Substance: ASPIRIN
     Dosage: 325 UNK, QD

REACTIONS (8)
  - Dyspnoea [Recovered/Resolved with Sequelae]
  - Oedema [Recovered/Resolved]
  - Oxygen consumption increased [Recovered/Resolved]
  - Cardiac failure congestive [Recovered/Resolved with Sequelae]
  - Swelling [Recovered/Resolved]
  - Weight increased [Recovered/Resolved]
  - Pleural effusion [Recovered/Resolved with Sequelae]
  - Fluid retention [Recovered/Resolved with Sequelae]

NARRATIVE: CASE EVENT DATE: 20190703
